FAERS Safety Report 21393715 (Version 4)
Quarter: 2022Q4

REPORT INFORMATION
  Report Type: Report from Study
  Country: IL (occurrence: IL)
  Receive Date: 20220930
  Receipt Date: 20221019
  Transmission Date: 20230113
  Serious: Yes (Hospitalization)
  Sender: FDA-Public Use
  Company Number: IL-ABBVIE-22K-082-4524277-00

PATIENT
  Sex: Male

DRUGS (9)
  1. CARBIDOPA\LEVODOPA [Suspect]
     Active Substance: CARBIDOPA\LEVODOPA
     Indication: Parkinson^s disease
     Dosage: MORNING DOSE 11ML , CONTINUOUS DOSE 2.8ML/HR , EXTRA DOSE 1.5 ML PER DOSE
     Route: 050
     Dates: start: 20220628, end: 2022
  2. CARBIDOPA\LEVODOPA [Suspect]
     Active Substance: CARBIDOPA\LEVODOPA
     Dosage: MORNING DOSAGE(ML)  10.8, CONTINUOUS DOSAGE (ML/H)  2.8, EXTRA DOSAGE (ML)  1.5
     Route: 050
  3. CARBIDOPA\LEVODOPA [Suspect]
     Active Substance: CARBIDOPA\LEVODOPA
     Route: 050
     Dates: start: 2022, end: 2022
  4. CARBIDOPA\LEVODOPA [Suspect]
     Active Substance: CARBIDOPA\LEVODOPA
     Dosage: MORNING DOSAGE(ML) 8.5, CONTINUOUS DOSAGE (ML/H) 2.4 , EXTRA DOSAGE (ML) 1.0??ROUTE: PERCUTANEOUS...
     Route: 050
     Dates: start: 20220915, end: 202209
  5. CARBIDOPA\LEVODOPA [Suspect]
     Active Substance: CARBIDOPA\LEVODOPA
     Dosage: MORNING DOSE 11ML , CONTINUOUS DOSE 2.8ML/HR , EXTRA DOSE 1.5 ML PER DOSE
     Route: 050
  6. CARBIDOPA\LEVODOPA [Suspect]
     Active Substance: CARBIDOPA\LEVODOPA
     Dosage: MORNING DOSE WAS DECREASED AND THE CONTINUOUS DOSE AND AN EXTRA DOSE WERE INCREASED
     Route: 050
     Dates: start: 2022
  7. AFLUMYCIN [Concomitant]
     Indication: Skin irritation
  8. SINEMET [Concomitant]
     Active Substance: CARBIDOPA\LEVODOPA
     Indication: Product used for unknown indication
     Dosage: BEFORE BED TIME
  9. ASPIRIN [Concomitant]
     Active Substance: ASPIRIN
     Indication: Product used for unknown indication

REACTIONS (10)
  - Myocardial ischaemia [Unknown]
  - Dyskinesia [Recovering/Resolving]
  - Device issue [Recovered/Resolved]
  - Nervousness [Unknown]
  - Haemorrhage [Unknown]
  - Skin disorder [Recovering/Resolving]
  - On and off phenomenon [Recovering/Resolving]
  - Skin irritation [Recovered/Resolved]
  - Cardiac disorder [Recovering/Resolving]
  - Therapeutic product effect incomplete [Unknown]

NARRATIVE: CASE EVENT DATE: 20220101
